FAERS Safety Report 12861515 (Version 1)
Quarter: 2016Q4

REPORT INFORMATION
  Report Type: Spontaneous
  Country: NL (occurrence: NL)
  Receive Date: 20161019
  Receipt Date: 20161019
  Transmission Date: 20170207
  Serious: Yes (Life-Threatening)
  Sender: FDA-Public Use
  Company Number: NL-ROCHE-1843458

PATIENT
  Sex: Male

DRUGS (4)
  1. TREOSULFAN [Suspect]
     Active Substance: TREOSULFAN
     Indication: GRAFT VERSUS HOST DISEASE
     Dosage: 36 G/M2
     Route: 065
  2. ANTI-THYMOCYTE GLOBULIN (EQUINE) [Suspect]
     Active Substance: EQUINE THYMOCYTE IMMUNE GLOBULIN
     Indication: GRAFT VERSUS HOST DISEASE
     Route: 065
  3. RITUXIMAB [Suspect]
     Active Substance: RITUXIMAB
     Indication: GRAFT VERSUS HOST DISEASE
     Route: 065
  4. FLUDARABINA [Suspect]
     Active Substance: FLUDARABINE PHOSPHATE
     Indication: GRAFT VERSUS HOST DISEASE
     Route: 065

REACTIONS (3)
  - Bronchitis [Unknown]
  - Varicella [Unknown]
  - Acarodermatitis [Unknown]
